FAERS Safety Report 4776018-6 (Version None)
Quarter: 2005Q3

REPORT INFORMATION
  Report Type: 
  Country: None (occurrence: None)
  Receive Date: 20050914
  Receipt Date: 20050211
  Transmission Date: 20060218
  Serious: Yes (Other)
  Sender: FDA-Public Use
  Company Number: 163-20785-05020366

PATIENT
  Sex: Female

DRUGS (3)
  1. THALOMID [Suspect]
     Indication: SARCOMA
     Dosage: ORAL
     Route: 048
  2. FENTANYL [Suspect]
     Dosage: TRANSDERMAL
     Route: 062
  3. OXYCODONE (OXYCODONE) (UNKNOWN) [Suspect]

REACTIONS (4)
  - ASTHENIA [None]
  - FATIGUE [None]
  - LETHARGY [None]
  - MALAISE [None]
